FAERS Safety Report 7285436-6 (Version None)
Quarter: 2011Q1

REPORT INFORMATION
  Report Type: 
  Country: None (occurrence: None)
  Receive Date: 20110210
  Receipt Date: 20101109
  Transmission Date: 20110831
  Serious: Yes (Other)
  Sender: FDA-Public Use
  Company Number: BR-BAYER-201020809LA

PATIENT
  Sex: Female
  Weight: 73 kg

DRUGS (1)
  1. MIRENA [Suspect]
     Indication: ENDOMETRIOSIS
     Dosage: FREQUENCY: CONTINUOUS
     Route: 015
     Dates: start: 20050622

REACTIONS (12)
  - VAGINAL HAEMORRHAGE [None]
  - HYPOMENORRHOEA [None]
  - PYREXIA [None]
  - ABDOMINAL PAIN [None]
  - ADNEXA UTERI PAIN [None]
  - COMPLICATION OF DEVICE REMOVAL [None]
  - AMENORRHOEA [None]
  - PRURITUS GENERALISED [None]
  - PAIN [None]
  - URTICARIA [None]
  - SYNCOPE [None]
  - DEVICE DIFFICULT TO USE [None]
